FAERS Safety Report 15766496 (Version 2)
Quarter: 2019Q2

REPORT INFORMATION
  Report Type: Spontaneous
  Country: US (occurrence: US)
  Receive Date: 20181227
  Receipt Date: 20190522
  Transmission Date: 20190711
  Serious: No
  Sender: FDA-Public Use
  Company Number: US-PFIZER INC-2018526773

PATIENT
  Age: 34 Year
  Sex: Female

DRUGS (2)
  1. CLINDAMYCIN HCL [Suspect]
     Active Substance: CLINDAMYCIN HYDROCHLORIDE
     Dosage: UNK
  2. COMPAZINE [PROCHLORPERAZINE EDISYLATE] [Suspect]
     Active Substance: PROCHLORPERAZINE EDISYLATE
     Dosage: UNK

REACTIONS (3)
  - Rash [Unknown]
  - Drug hypersensitivity [Unknown]
  - Pruritus [Unknown]
